FAERS Safety Report 25482933 (Version 1)
Quarter: 2025Q2

REPORT INFORMATION
  Report Type: Spontaneous
  Country: US (occurrence: US)
  Receive Date: 20250626
  Receipt Date: 20250626
  Transmission Date: 20250717
  Serious: Yes (Other)
  Sender: MERCK SHARP & DOHME LLC
  Company Number: US-009507513-2298117

PATIENT
  Sex: Male

DRUGS (1)
  1. BELZUTIFAN [Suspect]
     Active Substance: BELZUTIFAN
     Indication: Renal cancer metastatic
     Route: 048

REACTIONS (3)
  - Hypoxia [Unknown]
  - Lung neoplasm surgery [Unknown]
  - Dyspnoea [Unknown]
